FAERS Safety Report 15820757 (Version 2)
Quarter: 2019Q1

REPORT INFORMATION
  Report Type: Spontaneous
  Country: US (occurrence: US)
  Receive Date: 20190114
  Receipt Date: 20190114
  Transmission Date: 20190417
  Serious: No
  Sender: FDA-Public Use
  Company Number: US-SA-2019SA009463

PATIENT
  Sex: Male
  Weight: 130.16 kg

DRUGS (5)
  1. ZETIA [Concomitant]
     Active Substance: EZETIMIBE
     Dosage: 10 MG
  2. ASPIRIN EC [Concomitant]
     Active Substance: ASPIRIN
     Dosage: 325 MG
  3. ASPERCREME [LIDOCAINE] [Concomitant]
     Dosage: 10 %
  4. FISH OIL [Concomitant]
     Active Substance: FISH OIL
  5. PRALUENT [Suspect]
     Active Substance: ALIROCUMAB
     Indication: TYPE IIA HYPERLIPIDAEMIA
     Dosage: 75 MG, QOW
     Route: 058
     Dates: start: 20181218

REACTIONS (5)
  - Chromaturia [Unknown]
  - Faeces soft [Unknown]
  - Influenza [Unknown]
  - Abnormal faeces [Unknown]
  - Arthralgia [Unknown]
